FAERS Safety Report 8473308-0 (Version None)
Quarter: 2012Q2

REPORT INFORMATION
  Report Type: 
  Country: None (occurrence: None)
  Receive Date: 20120628
  Receipt Date: 20120619
  Transmission Date: 20120825
  Serious: Yes (Death)
  Sender: FDA-Public Use
  Company Number: AU-BRISTOL-MYERS SQUIBB COMPANY-16700403

PATIENT
  Age: 67 Year
  Sex: Male

DRUGS (15)
  1. ACETAMINOPHEN [Concomitant]
  2. ENDEP [Concomitant]
  3. LIPITOR [Concomitant]
  4. METFORMIN HCL [Concomitant]
  5. FOSAMAX [Concomitant]
  6. OXYCONTIN [Concomitant]
  7. ORENCIA [Suspect]
     Indication: RHEUMATOID ARTHRITIS
     Route: 042
     Dates: start: 20110331
  8. FUROSEMIDE [Concomitant]
  9. VITAMIN D [Concomitant]
  10. PREDNISONE TAB [Concomitant]
  11. NOVOLOG MIX 70/30 [Concomitant]
  12. PERINDOPRIL ERBUMINE [Concomitant]
  13. METHOTREXATE [Concomitant]
  14. FOLIC ACID [Concomitant]
  15. TEMAZEPAM [Concomitant]

REACTIONS (1)
  - DEATH [None]
